FAERS Safety Report 15001070 (Version 1)
Quarter: 2018Q2

REPORT INFORMATION
  Report Type: Spontaneous
  Country: US (occurrence: US)
  Receive Date: 20180612
  Receipt Date: 20180612
  Transmission Date: 20180711
  Serious: Yes (Other)
  Sender: FDA-Public Use
  Company Number: US-SMITH AND NEPHEW, INC-2018SMT00099

PATIENT
  Age: 57 Year
  Sex: Female
  Weight: 103.4 kg

DRUGS (3)
  1. COLLAGENASE SANTYL [Suspect]
     Active Substance: COLLAGENASE CLOSTRIDIUM HISTOLYTICUM
     Dosage: THICKNESS OF A NICKLE ON THE WOUND SITE, ONCE
     Route: 061
     Dates: start: 20180531, end: 20180531
  2. COLLAGENASE SANTYL [Suspect]
     Active Substance: COLLAGENASE CLOSTRIDIUM HISTOLYTICUM
     Indication: LIMB INJURY
     Dosage: THICKNESS OF A NICKLE ON THE WOUND SITE
     Route: 061
     Dates: start: 201712, end: 201802
  3. MOTRIN [Concomitant]
     Active Substance: IBUPROFEN
     Dosage: UNK

REACTIONS (2)
  - Skin graft [Unknown]
  - Wound infection [Unknown]

NARRATIVE: CASE EVENT DATE: 201803
